FAERS Safety Report 25962247 (Version 1)
Quarter: 2025Q4

REPORT INFORMATION
  Report Type: Report from Study
  Country: EU (occurrence: EU)
  Receive Date: 20251027
  Receipt Date: 20251027
  Transmission Date: 20260118
  Serious: Yes (Other)
  Sender: MYLAN
  Company Number: None

PATIENT
  Age: 63 Year
  Sex: Female

DRUGS (2)
  1. PACLITAXEL [Suspect]
     Active Substance: PACLITAXEL
     Indication: Tongue neoplasm malignant stage unspecified
     Dosage: 90 MILLIGRAM
     Dates: start: 20250528, end: 20250528
  2. ERBITUX [Suspect]
     Active Substance: CETUXIMAB
     Indication: Tongue neoplasm malignant stage unspecified
     Dosage: 405 MILLIGRAM
     Dates: start: 20250528, end: 20250528

REACTIONS (5)
  - Hyperkalaemia [Recovering/Resolving]
  - Azotaemia [Recovering/Resolving]
  - Hyperamylasaemia [Recovering/Resolving]
  - Hypotension [Recovering/Resolving]
  - Off label use [Recovering/Resolving]

NARRATIVE: CASE EVENT DATE: 20250528
